FAERS Safety Report 9158442 (Version 1)
Quarter: 2013Q1

REPORT INFORMATION
  Report Type: Report from Study
  Country: US (occurrence: US)
  Receive Date: 20130312
  Receipt Date: 20130312
  Transmission Date: 20140127
  Serious: Yes (Hospitalization, Other)
  Sender: FDA-Public Use
  Company Number: US-ABBOTT-13P-163-1059424-00

PATIENT
  Age: 63 None
  Sex: Female

DRUGS (28)
  1. HUMIRA [Suspect]
     Indication: RHEUMATOID ARTHRITIS
     Dates: start: 2006
  2. ALLERGA D [Concomitant]
     Indication: HYPERSENSITIVITY
  3. EFFEXOR [Concomitant]
     Indication: DEPRESSION
  4. XANAX [Concomitant]
     Indication: INSOMNIA
  5. ULORIC [Concomitant]
     Indication: NEPHROPATHY
  6. NOVOLOG [Concomitant]
     Indication: DIABETES MELLITUS
  7. LANTIS [Concomitant]
     Indication: DIABETES MELLITUS
  8. SYNTHROID [Concomitant]
     Indication: THYROID DISORDER
  9. VYTORIN [Concomitant]
     Indication: BLOOD CHOLESTEROL
  10. NIASPAN [Concomitant]
     Indication: CARDIAC DISORDER
  11. METOPROLOL [Concomitant]
     Indication: BLOOD PRESSURE
  12. LISINOPRIL [Concomitant]
     Indication: BLOOD PRESSURE
  13. GABAPENTIN [Concomitant]
     Indication: NEUROPATHY PERIPHERAL
  14. LASIX [Concomitant]
     Indication: FLUID RETENTION
  15. HYDROCHLOROTHIAZIDE [Concomitant]
     Indication: BLOOD PRESSURE
  16. CALCITROL [Concomitant]
     Indication: RENAL DISORDER
  17. TRAMADOL [Concomitant]
     Indication: PAIN
  18. CLOBETASOL [Concomitant]
     Indication: VULVOVAGINAL PRURITUS
  19. SOMA [Concomitant]
     Indication: MUSCLE SPASMS
  20. VALREX [Concomitant]
     Indication: ORAL HERPES
  21. NYSTATIN [Concomitant]
     Indication: RASH
  22. MULTIVITAMIN [Concomitant]
     Indication: PRODUCT USED FOR UNKNOWN INDICATION
  23. VITAMIN D [Concomitant]
     Indication: PRODUCT USED FOR UNKNOWN INDICATION
  24. FISH OIL [Concomitant]
     Indication: PRODUCT USED FOR UNKNOWN INDICATION
  25. CO Q 10 [Concomitant]
     Indication: PRODUCT USED FOR UNKNOWN INDICATION
  26. TART CHERRY CAPSULES [Concomitant]
     Indication: PRODUCT USED FOR UNKNOWN INDICATION
  27. CALCIUM [Concomitant]
     Indication: PRODUCT USED FOR UNKNOWN INDICATION
  28. NASONEX [Concomitant]
     Indication: PRODUCT USED FOR UNKNOWN INDICATION

REACTIONS (11)
  - Fall [Recovering/Resolving]
  - Humerus fracture [Unknown]
  - Musculoskeletal pain [Recovering/Resolving]
  - Cervix disorder [Unknown]
  - Gastroenteritis viral [Recovered/Resolved]
  - Cough [Not Recovered/Not Resolved]
  - Sinusitis [Not Recovered/Not Resolved]
  - Headache [Not Recovered/Not Resolved]
  - Swelling face [Not Recovered/Not Resolved]
  - Upper-airway cough syndrome [Not Recovered/Not Resolved]
  - Nasal congestion [Not Recovered/Not Resolved]
